FAERS Safety Report 24555729 (Version 2)
Quarter: 2025Q3

REPORT INFORMATION
  Report Type: Spontaneous
  Country: EU (occurrence: EU)
  Receive Date: 20241028
  Receipt Date: 20250803
  Transmission Date: 20251021
  Serious: Yes (Other)
  Sender: ALEXION PHARMACEUTICALS
  Company Number: EU-ASTRAZENECA-202410EEA010008FI

PATIENT
  Age: 25 Year
  Sex: Female

DRUGS (1)
  1. SAPHNELO [Suspect]
     Active Substance: ANIFROLUMAB-FNIA
     Indication: Product used for unknown indication

REACTIONS (11)
  - Dyspnoea [Unknown]
  - Chest pain [Unknown]
  - Fatigue [Unknown]
  - Arthralgia [Unknown]
  - Rash maculo-papular [Unknown]
  - C-reactive protein increased [Unknown]
  - Anaemia [Unknown]
  - Proteinuria [Unknown]
  - Pleural effusion [Unknown]
  - Cutaneous vasculitis [Unknown]
  - Antiphospholipid antibodies positive [Unknown]
